FAERS Safety Report 10311484 (Version 1)
Quarter: 2014Q3

REPORT INFORMATION
  Report Type: Spontaneous
  Country: US (occurrence: None)
  Receive Date: 20140714
  Receipt Date: 20140714
  Transmission Date: 20150326
  Serious: Yes (Hospitalization)
  Sender: FDA-Public Use
  Company Number: US-ZYDUS-004004

PATIENT
  Age: 16 Year
  Sex: Male

DRUGS (5)
  1. OXCARBAZEPINE. [Suspect]
     Active Substance: OXCARBAZEPINE
  2. RILUZOLE(RILUZOLE) [Concomitant]
  3. ZONISAMIDE. [Suspect]
     Active Substance: ZONISAMIDE
  4. VALPROIC ACID(VALPROIC ACID) [Concomitant]
  5. PHENYTOIN. [Suspect]
     Active Substance: PHENYTOIN

REACTIONS (3)
  - Aggression [None]
  - Thrombocytopenia [None]
  - Condition aggravated [None]
